FAERS Safety Report 4321896-8 (Version None)
Quarter: 2004Q1

REPORT INFORMATION
  Report Type: 
  Country: None (occurrence: None)
  Receive Date: 20040317
  Receipt Date: 20040308
  Transmission Date: 20041129
  Serious: Yes (Hospitalization)
  Sender: FDA-Public Use
  Company Number: 200410110BYL

PATIENT
  Age: 3 Year
  Sex: Male

DRUGS (1)
  1. GAMIMUNE N 5% [Suspect]
     Indication: KAWASAKI'S DISEASE

REACTIONS (1)
  - IDIOPATHIC THROMBOCYTOPENIC PURPURA [None]
